FAERS Safety Report 20315328 (Version 1)
Quarter: 2022Q1

REPORT INFORMATION
  Report Type: Spontaneous
  Country: US (occurrence: None)
  Receive Date: 20220110
  Receipt Date: 20220110
  Transmission Date: 20220424
  Serious: No
  Sender: FDA-Public Use
  Company Number: US-ROCHE-2766674

PATIENT
  Sex: Female
  Weight: 53.572 kg

DRUGS (1)
  1. RITUXAN [Suspect]
     Active Substance: RITUXIMAB
     Indication: Hairy cell leukaemia
     Dosage: ONGOING:YES
     Route: 042
     Dates: start: 202003

REACTIONS (5)
  - Alopecia [Unknown]
  - Alopecia [Unknown]
  - Diarrhoea [Unknown]
  - Abdominal pain upper [Unknown]
  - Diarrhoea [Unknown]
